FAERS Safety Report 16821933 (Version 1)
Quarter: 2019Q3

REPORT INFORMATION
  Report Type: Spontaneous
  Country: IN (occurrence: JP)
  Receive Date: 20190918
  Receipt Date: 20190918
  Transmission Date: 20191005
  Serious: Yes (Other)
  Sender: FDA-Public Use
  Company Number: IN-PFIZER INC-2019398529

PATIENT

DRUGS (1)
  1. CABASER [Suspect]
     Active Substance: CABERGOLINE
     Dosage: UNK

REACTIONS (5)
  - Meningitis tuberculous [Unknown]
  - Visual field defect [Unknown]
  - Withdrawal syndrome [Unknown]
  - Cerebrospinal fluid leakage [Unknown]
  - Visual impairment [Unknown]
